FAERS Safety Report 9102909 (Version 1)
Quarter: 2013Q1

REPORT INFORMATION
  Report Type: Spontaneous
  Country: FR (occurrence: FR)
  Receive Date: 20130219
  Receipt Date: 20130219
  Transmission Date: 20140127
  Serious: Yes (Hospitalization)
  Sender: FDA-Public Use
  Company Number: FR-PFIZER INC-2013061451

PATIENT
  Age: 78 Year
  Sex: Female

DRUGS (6)
  1. CORDARONE [Suspect]
     Indication: ATRIAL FIBRILLATION
     Dosage: 0.5 DOSE FORM ONCE A DAY
     Route: 048
     Dates: end: 20120516
  2. PREVISCAN [Concomitant]
     Dosage: UNK
  3. COZAAR [Concomitant]
     Dosage: UNK
  4. SPIRIVA [Concomitant]
     Dosage: UNK
  5. SEREVENT [Concomitant]
     Dosage: UNK
  6. GLUCOR [Concomitant]
     Dosage: UNK
     Dates: start: 20120501, end: 20120516

REACTIONS (5)
  - Sinus bradycardia [Recovered/Resolved]
  - Syncope [Recovered/Resolved]
  - Joint injury [Unknown]
  - Transient ischaemic attack [Unknown]
  - Dysarthria [Unknown]
